FAERS Safety Report 11129416 (Version 3)
Quarter: 2015Q3

REPORT INFORMATION
  Report Type: Spontaneous
  Country: US (occurrence: US)
  Receive Date: 20150521
  Receipt Date: 20150807
  Transmission Date: 20151125
  Serious: No
  Sender: FDA-Public Use
  Company Number: US-GLAXOSMITHKLINE-US2015GSK069049

PATIENT
  Age: 57 Year
  Sex: Male
  Weight: 60.8 kg

DRUGS (14)
  1. HYDROXYZINE [Concomitant]
     Active Substance: HYDROXYZINE\HYDROXYZINE HYDROCHLORIDE
  2. METFORMIN [Concomitant]
     Active Substance: METFORMIN HYDROCHLORIDE
  3. KETOCONAZOLE. [Concomitant]
     Active Substance: KETOCONAZOLE
  4. MEKINIST [Suspect]
     Active Substance: TRAMETINIB DIMETHYL SULFOXIDE
     Indication: MALIGNANT MELANOMA
     Dosage: 2 MG, QD
     Route: 048
     Dates: start: 20150514
  5. TIZANIDINE. [Concomitant]
     Active Substance: TIZANIDINE
  6. LORAZEPAM. [Concomitant]
     Active Substance: LORAZEPAM
  7. AMLODIPINE [Concomitant]
     Active Substance: AMLODIPINE BESYLATE
  8. MELATONIN [Concomitant]
     Active Substance: MELATONIN
  9. MEKINIST [Suspect]
     Active Substance: TRAMETINIB DIMETHYL SULFOXIDE
     Dosage: 2 MG, BID
     Route: 048
     Dates: start: 20150509, end: 20150513
  10. HYDROCHLOROTHIAZIDE. [Concomitant]
     Active Substance: HYDROCHLOROTHIAZIDE
  11. CELEBREX [Concomitant]
     Active Substance: CELECOXIB
  12. GLIPIZIDE. [Concomitant]
     Active Substance: GLIPIZIDE
  13. LISINOPRIL. [Concomitant]
     Active Substance: LISINOPRIL
  14. OXYCODONE + APAP [Concomitant]

REACTIONS (3)
  - Overdose [Recovered/Resolved]
  - Treatment noncompliance [Recovered/Resolved]
  - Incorrect dose administered [Recovered/Resolved]

NARRATIVE: CASE EVENT DATE: 20150509
